FAERS Safety Report 5291085-1 (Version None)
Quarter: 2007Q2

REPORT INFORMATION
  Report Type: 
  Country: None (occurrence: None)
  Receive Date: 20070409
  Receipt Date: 20070404
  Transmission Date: 20071010
  Serious: Yes (Hospitalization, Other)
  Sender: FDA-Public Use
  Company Number: US-PURDUE-USA_2007_0026985

PATIENT
  Age: 27 Year
  Sex: Female

DRUGS (1)
  1. MORPHINE SULFATE [Suspect]
     Indication: NEURALGIA
     Dosage: 30 MG, QID

REACTIONS (4)
  - IRRITABILITY [None]
  - OVERDOSE [None]
  - PAIN [None]
  - RENAL IMPAIRMENT [None]
